FAERS Safety Report 6267727-0 (Version None)
Quarter: 2009Q3

REPORT INFORMATION
  Report Type: 
  Country: None (occurrence: None)
  Receive Date: 20090714
  Receipt Date: 20090702
  Transmission Date: 20100115
  Serious: Yes (Other)
  Sender: FDA-Public Use
  Company Number: DE-BAYER-200832517GPV

PATIENT

DRUGS (1)
  1. MAGNEVIST [Suspect]
     Indication: NUCLEAR MAGNETIC RESONANCE IMAGING
     Dosage: 0.28 AND 0.34 ML/KG BODY WEIGHT OF STANDARD DOSE 0.5 MMOL
     Route: 065

REACTIONS (10)
  - ACUTE PHASE REACTION [None]
  - ANURIA [None]
  - CHILLS [None]
  - DYSPNOEA [None]
  - EOSINOPHIL COUNT INCREASED [None]
  - HYPOTENSION [None]
  - LYMPHOPENIA [None]
  - MALAISE [None]
  - PYREXIA [None]
  - VOMITING [None]
